FAERS Safety Report 7552221-7 (Version None)
Quarter: 2011Q2

REPORT INFORMATION
  Report Type: 
  Country: None (occurrence: None)
  Receive Date: 20110616
  Receipt Date: 20030904
  Transmission Date: 20111010
  Serious: Yes (Hospitalization)
  Sender: FDA-Public Use
  Company Number: PHHO2003CO08832

PATIENT
  Sex: Male

DRUGS (1)
  1. DIOVAN HCT [Suspect]
     Indication: HYPERTENSION
     Dosage: 160 MG, UNK
     Route: 048
     Dates: start: 20030501

REACTIONS (4)
  - HOT FLUSH [None]
  - CHEST DISCOMFORT [None]
  - DIZZINESS [None]
  - BLOOD PRESSURE SYSTOLIC INCREASED [None]
